FAERS Safety Report 8184131-9 (Version None)
Quarter: 2012Q1

REPORT INFORMATION
  Report Type: 
  Country: None (occurrence: None)
  Receive Date: 20120305
  Receipt Date: 20120227
  Transmission Date: 20120608
  Serious: Yes (Other)
  Sender: FDA-Public Use
  Company Number: BR-PFIZER INC-2011221141

PATIENT
  Age: 38 Year
  Sex: Male

DRUGS (8)
  1. TIMOLOL MALEATE [Concomitant]
     Dosage: UNK
  2. PREDNISOLONE ACETATE [Concomitant]
     Dosage: 1 %, EVERY 2 HOURS
  3. XALATAN [Suspect]
     Indication: INTRAOCULAR PRESSURE TEST ABNORMAL
  4. XALATAN [Suspect]
     Indication: GLAUCOMA
     Dosage: 1.5UG (ONE DROP) IN BOTH EYES ONCE DAILY AT NIGHT
     Route: 047
     Dates: start: 20071101
  5. DORZOLAMIDE HYDROCHLORIDE [Concomitant]
     Dosage: UNK
  6. LOSARTAN [Concomitant]
  7. OLMESARTAN [Concomitant]
     Dosage: 50 MG, 1X/DAY
  8. BRIMONIDINE TARTRATE [Concomitant]

REACTIONS (1)
  - EYE DISORDER [None]
